FAERS Safety Report 19281536 (Version 1)
Quarter: 2021Q2

REPORT INFORMATION
  Report Type: Report from Study
  Country: US (occurrence: US)
  Receive Date: 20210520
  Receipt Date: 20210520
  Transmission Date: 20210717
  Serious: No
  Sender: FDA-Public Use
  Company Number: US-IGSA-BIG0014480

PATIENT
  Age: 71 Year
  Sex: Male

DRUGS (2)
  1. GAMUNEX?C [Suspect]
     Active Substance: HUMAN IMMUNOGLOBULIN G
     Indication: MYASTHENIA GRAVIS
     Dosage: 80 GRAM, Q.4WK.
     Route: 042
     Dates: start: 20210210, end: 20210310
  2. GAMUNEX?C [Suspect]
     Active Substance: HUMAN IMMUNOGLOBULIN G
     Indication: OFF LABEL USE
     Dosage: 80 GRAM, Q.4WK.
     Route: 042
     Dates: start: 20200630, end: 20210210

REACTIONS (1)
  - Swollen tongue [Unknown]

NARRATIVE: CASE EVENT DATE: 20210210
